FAERS Safety Report 9165094 (Version 1)
Quarter: 2013Q1

REPORT INFORMATION
  Report Type: Spontaneous
  Country: KR (occurrence: None)
  Receive Date: 20130227
  Receipt Date: 20130227
  Transmission Date: 20140127
  Serious: Yes (Hospitalization)
  Sender: FDA-Public Use
  Company Number: INT_00217_2013

PATIENT
  Age: 65 Year
  Sex: Female

DRUGS (1)
  1. CEFTRIAXONE [Suspect]
     Indication: URINARY TRACT INFECTION
     Route: 042

REACTIONS (12)
  - Mental status changes [None]
  - Myoclonus [None]
  - Stupor [None]
  - C-reactive protein increased [None]
  - Renal failure chronic [None]
  - Electroencephalogram abnormal [None]
  - Status epilepticus [None]
  - Vena cava thrombosis [None]
  - Renal vein thrombosis [None]
  - Ovarian vein thrombosis [None]
  - Pelvic venous thrombosis [None]
  - Neurotoxicity [None]
